FAERS Safety Report 9097089 (Version 2)
Quarter: 2013Q1

REPORT INFORMATION
  Report Type: Spontaneous
  Country: US (occurrence: None)
  Receive Date: 20130125
  Receipt Date: 20130312
  Transmission Date: 20140127
  Serious: Yes (Death)
  Sender: FDA-Public Use
  Company Number: TPA2013A00912

PATIENT
  Age: 62 Year
  Sex: Female
  Weight: 49.9 kg

DRUGS (19)
  1. DEXILANT [Suspect]
     Indication: GASTROOESOPHAGEAL REFLUX DISEASE
     Dosage: 60 MG, 1 IN 1 D
     Route: 048
     Dates: start: 20110305
  2. ALBUTEROL (SALBUTAMOL) [Concomitant]
  3. DEXAMETHASONE (DEXAMETHASONE) [Concomitant]
  4. DUONEB (IPRATROPIUM BROMIDE, SALBUTAMOL SULFATE) [Concomitant]
  5. LORAZEPAM (LORAZEPAM) [Concomitant]
  6. MAGNESIUM OXIDE (MAGNESIUM OXIDE) [Concomitant]
  7. MEGESTEROL (MEGESTROL) [Concomitant]
  8. MORPHINE [Concomitant]
  9. NYSTATIN (NYSTATIN) [Concomitant]
  10. OXYCODONE (OXYCODONE) [Concomitant]
  11. PAROXETINE (PAROXETINE) [Concomitant]
  12. PRAVASTATIN (PRAVASTATIN) [Concomitant]
  13. PROCHLORPERAZINE (PROCHLORPERAZINE) [Concomitant]
  14. PROVENTIL HFA (SALBUTAMOL) [Concomitant]
  15. SCOPOLAMINE (SCOPOLAMINE AMINOXIDE) [Concomitant]
  16. VITAMIN D3 (COLECALCIFEROL) [Concomitant]
  17. VOLTAREN 1 % TOPICAL GEL (DICLOFENAC) [Concomitant]
  18. WARFARIN (WARFARIN) [Concomitant]
  19. OXYCONTIN (OXYCODONE HYDROCHLORIDE) [Concomitant]

REACTIONS (1)
  - Overdose [None]
